FAERS Safety Report 8687990 (Version 2)
Quarter: 2012Q4

REPORT INFORMATION
  Report Type: 
  Country: US (occurrence: US)
  Receive Date: 20120727
  Receipt Date: 20121015
  Transmission Date: 20130627
  Serious: No
  Sender: FDA-Public Use
  Company Number: US-ASTRAZENECA-2012SE48378

PATIENT
  Age: 38 Year
  Sex: Male

DRUGS (1)
  1. NEXIUM [Suspect]
     Route: 048

REACTIONS (7)
  - Feeling abnormal [Unknown]
  - Feeling abnormal [Unknown]
  - Drug dose omission [Unknown]
  - Oesophageal disorder [Unknown]
  - Hot flush [Unknown]
  - Throat irritation [None]
  - Vomiting [Unknown]
